FAERS Safety Report 9276050 (Version 1)
Quarter: 2013Q2

REPORT INFORMATION
  Report Type: Spontaneous
  Country: US (occurrence: US)
  Receive Date: 20130507
  Receipt Date: 20130507
  Transmission Date: 20140414
  Serious: No
  Sender: FDA-Public Use
  Company Number: US-PFIZER INC-2013142038

PATIENT
  Age: 82 Year
  Sex: Female
  Weight: 81.63 kg

DRUGS (6)
  1. LYRICA [Suspect]
     Indication: NEURALGIA
     Dosage: 75 MG, 2X/DAY
     Route: 048
     Dates: start: 20130502
  2. LYRICA [Suspect]
     Indication: PAIN IN EXTREMITY
  3. DIAZEPAM [Concomitant]
     Dosage: UNK
  4. METOPROLOL [Concomitant]
     Dosage: 25 MG, 2X/DAY
  5. FUROSEMIDE [Concomitant]
     Dosage: 100 MG, 1X/DAY
  6. CLOPIDOGREL [Concomitant]
     Dosage: 75 MG, 1X/DAY

REACTIONS (3)
  - Hypoaesthesia [Not Recovered/Not Resolved]
  - Headache [Not Recovered/Not Resolved]
  - Off label use [Not Recovered/Not Resolved]
